FAERS Safety Report 5837287-4 (Version None)
Quarter: 2008Q3

REPORT INFORMATION
  Report Type: 
  Country: None (occurrence: None)
  Receive Date: 20080807
  Receipt Date: 20080728
  Transmission Date: 20090109
  Serious: Yes (Disabling)
  Sender: FDA-Public Use
  Company Number: US-ELI_LILLY_AND_COMPANY-US200807005758

PATIENT
  Age: 74 Year
  Sex: Female

DRUGS (1)
  1. HUMALOG [Suspect]

REACTIONS (2)
  - CARDIAC OPERATION [None]
  - HIP ARTHROPLASTY [None]
